FAERS Safety Report 11381562 (Version 2)
Quarter: 2015Q3

REPORT INFORMATION
  Report Type: Spontaneous
  Country: US (occurrence: US)
  Receive Date: 20150814
  Receipt Date: 20150819
  Transmission Date: 20151125
  Serious: Yes (Other)
  Sender: FDA-Public Use
  Company Number: US-PFIZER INC-2015256629

PATIENT
  Age: 58 Year
  Sex: Female
  Weight: 129 kg

DRUGS (2)
  1. SUTENT [Suspect]
     Active Substance: SUNITINIB MALATE
     Dosage: 37.5 MG, CYCLIC (28 DAYS ON, 14 DAYS OFF)
     Route: 048
  2. SUTENT [Suspect]
     Active Substance: SUNITINIB MALATE
     Indication: MENINGIOMA
     Dosage: 50 MG, 1X/DAY
     Dates: start: 2008, end: 2008

REACTIONS (7)
  - Burning sensation [Unknown]
  - Diarrhoea [Unknown]
  - Product use issue [Unknown]
  - Nasal disorder [Unknown]
  - Fatigue [Unknown]
  - Appetite disorder [Unknown]
  - Inflammation [Unknown]
